FAERS Safety Report 12403456 (Version 2)
Quarter: 2017Q1

REPORT INFORMATION
  Report Type: Spontaneous
  Country: US (occurrence: US)
  Receive Date: 20160525
  Receipt Date: 20170103
  Transmission Date: 20170428
  Serious: No
  Sender: FDA-Public Use
  Company Number: US-JAZZ-2015-US-015158

PATIENT
  Sex: Female

DRUGS (24)
  1. XYREM [Suspect]
     Active Substance: SODIUM OXYBATE
     Dosage: DOSE ADJUSTMENTS
     Route: 048
  2. IMITREX [Concomitant]
     Active Substance: SUMATRIPTAN SUCCINATE
  3. BUTALBITAL COMPOUND [Concomitant]
     Active Substance: ASPIRIN\BUTALBITAL\CAFFEINE
  4. COMPAZINE [Concomitant]
     Active Substance: PROCHLORPERAZINE MALEATE
  5. PERCODAN [Concomitant]
     Active Substance: ASPIRIN\OXYCODONE HYDROCHLORIDE
  6. SOMA [Concomitant]
     Active Substance: CARISOPRODOL
  7. METHADONE HCL [Concomitant]
     Active Substance: METHADONE HYDROCHLORIDE
  8. ZOLPIDEM TARTRATE. [Concomitant]
     Active Substance: ZOLPIDEM TARTRATE
  9. XYREM [Suspect]
     Active Substance: SODIUM OXYBATE
     Dosage: 4.5 G, BID
     Route: 048
     Dates: start: 201509
  10. BYSTOLIC [Concomitant]
     Active Substance: NEBIVOLOL HYDROCHLORIDE
  11. HUMIRA [Concomitant]
     Active Substance: ADALIMUMAB
  12. ORENCIA [Concomitant]
     Active Substance: ABATACEPT
  13. RESTORIL [Concomitant]
     Active Substance: TEMAZEPAM
  14. FISH OIL [Concomitant]
     Active Substance: FISH OIL
  15. LYRICA [Concomitant]
     Active Substance: PREGABALIN
  16. XYREM [Suspect]
     Active Substance: SODIUM OXYBATE
     Indication: HYPERSOMNIA
     Dosage: 3 G, BID
     Route: 048
     Dates: start: 201001, end: 201002
  17. FOSAMAX [Concomitant]
     Active Substance: ALENDRONATE SODIUM
  18. TOPAMAX [Concomitant]
     Active Substance: TOPIRAMATE
  19. VITAMIN C [Concomitant]
     Active Substance: ASCORBIC ACID
  20. XARELTO [Concomitant]
     Active Substance: RIVAROXABAN
  21. OXYCODONE HYDROCHLORIDE. [Concomitant]
     Active Substance: OXYCODONE HYDROCHLORIDE
  22. CALCIUM [Concomitant]
     Active Substance: CALCIUM
  23. ZINC. [Concomitant]
     Active Substance: ZINC
  24. XANAX XR [Concomitant]
     Active Substance: ALPRAZOLAM

REACTIONS (2)
  - Pain [Recovering/Resolving]
  - Hypertension [Recovered/Resolved]
